FAERS Safety Report 23639990 (Version 1)
Quarter: 2024Q1

REPORT INFORMATION
  Report Type: Spontaneous
  Country: US (occurrence: None)
  Receive Date: 20240316
  Receipt Date: 20240316
  Transmission Date: 20240410
  Serious: No
  Sender: FDA-Public Use
  Company Number: 2024A061409

PATIENT
  Sex: Male

DRUGS (2)
  1. BYDUREON BCISE [Suspect]
     Active Substance: EXENATIDE
     Dosage: 2.0MG UNKNOWN
  2. BYETTA [Suspect]
     Active Substance: EXENATIDE

REACTIONS (4)
  - Injection site pain [Unknown]
  - Product dose omission issue [Unknown]
  - Device issue [Unknown]
  - Device leakage [Unknown]
